FAERS Safety Report 5069260-0 (Version None)
Quarter: 2006Q3

REPORT INFORMATION
  Report Type: 
  Country: None (occurrence: None)
  Receive Date: 20060714
  Receipt Date: 20060331
  Transmission Date: 20061208
  Serious: No
  Sender: FDA-Public Use
  Company Number: 2006SP001486

PATIENT
  Age: 44 Year
  Sex: Female
  Weight: 67.586 kg

DRUGS (1)
  1. LUNESTA [Suspect]
     Indication: INSOMNIA
     Dosage: 1 MG;HS;ORAL
     Route: 048
     Dates: start: 20060101, end: 20060101

REACTIONS (7)
  - AGGRESSION [None]
  - AGITATION [None]
  - CRYING [None]
  - DEPRESSION [None]
  - MOOD SWINGS [None]
  - SCREAMING [None]
  - THINKING ABNORMAL [None]
